FAERS Safety Report 26099859 (Version 1)
Quarter: 2025Q4

REPORT INFORMATION
  Report Type: Spontaneous
  Country: TR (occurrence: TR)
  Receive Date: 20251128
  Receipt Date: 20251128
  Transmission Date: 20260118
  Serious: No
  Sender: ALKEM
  Company Number: None

PATIENT
  Age: 16 Year
  Sex: Male

DRUGS (13)
  1. ARIPIPRAZOLE [Suspect]
     Active Substance: ARIPIPRAZOLE
     Indication: Product used for unknown indication
     Dosage: UNK
     Route: 065
  2. OLANZAPINE [Suspect]
     Active Substance: OLANZAPINE
     Indication: Product used for unknown indication
     Dosage: 10 MILLIGRAM
     Route: 065
  3. OLANZAPINE [Suspect]
     Active Substance: OLANZAPINE
     Dosage: 15 MG/DAY
     Route: 065
  4. QUETIAPINE FUMARATE [Suspect]
     Active Substance: QUETIAPINE FUMARATE
     Indication: Product used for unknown indication
     Dosage: UNK
     Route: 065
  5. LORAZEPAM [Suspect]
     Active Substance: LORAZEPAM
     Indication: Product used for unknown indication
     Dosage: 2.5 MG/DAY
     Route: 065
  6. AMISULPRIDE [Concomitant]
     Active Substance: AMISULPRIDE
     Indication: Product used for unknown indication
     Dosage: 800 MILLIGRAM
     Route: 065
  7. BIPERIDEN [Concomitant]
     Active Substance: BIPERIDEN
     Indication: Product used for unknown indication
     Dosage: 5 MILLIGRAM (INJECTION)
     Route: 030
  8. BIPERIDEN [Concomitant]
     Active Substance: BIPERIDEN
     Dosage: 4 MG/DAY
     Route: 048
  9. HALOPERIDOL [Concomitant]
     Active Substance: HALOPERIDOL
     Indication: Product used for unknown indication
     Dosage: 15 MILLIGRAM
     Route: 065
  10. HALOPERIDOL [Concomitant]
     Active Substance: HALOPERIDOL
     Dosage: 5 MILLIGRAM
     Route: 065
  11. HALOPERIDOL [Concomitant]
     Active Substance: HALOPERIDOL
     Dosage: 5 MILLIGRAM (INJECTION) 3 TIMES A DAY
     Route: 030
  12. HALOPERIDOL [Concomitant]
     Active Substance: HALOPERIDOL
     Dosage: 15 MG/DAY (TABLET)
     Route: 065
  13. RISPERIDONE [Concomitant]
     Active Substance: RISPERIDONE
     Indication: Product used for unknown indication
     Dosage: UNK
     Route: 065

REACTIONS (4)
  - Restlessness [Unknown]
  - Palpitations [Unknown]
  - Tremor [Unknown]
  - Drug ineffective [Unknown]
